FAERS Safety Report 8579634-9 (Version None)
Quarter: 2012Q3

REPORT INFORMATION
  Report Type: 
  Country: None (occurrence: None)
  Receive Date: 20120808
  Receipt Date: 20120731
  Transmission Date: 20120928
  Serious: Yes (Other)
  Sender: FDA-Public Use
  Company Number: JP-VERTEX PHARMACEUTICALS INC.-AE-2012-011494

PATIENT
  Age: 59 Year
  Sex: Female

DRUGS (10)
  1. TELAVIC (TELAPREVIR) [Suspect]
     Indication: HEPATITIS C
     Route: 048
     Dates: start: 20120612
  2. NOVOLIN R [Concomitant]
     Route: 058
  3. LEVOTHYROXINE SODIUM [Concomitant]
     Route: 048
  4. PEGINTERFERON ALFA-2B [Concomitant]
     Indication: HEPATITIS C
     Route: 058
     Dates: start: 20120612
  5. LOXOPROFEN [Concomitant]
     Route: 048
     Dates: start: 20120611, end: 20120709
  6. MUCOSTA [Concomitant]
     Route: 048
     Dates: start: 20120611, end: 20120709
  7. URSO 250 [Concomitant]
     Route: 048
  8. LANSOPRAZOLE [Concomitant]
     Route: 048
  9. RIBAVIRIN [Concomitant]
     Indication: HEPATITIS C
     Route: 048
     Dates: start: 20120612
  10. NOVOLIN N [Concomitant]
     Route: 058

REACTIONS (1)
  - RETINOPATHY [None]
